FAERS Safety Report 12772970 (Version 1)
Quarter: 2016Q3

REPORT INFORMATION
  Report Type: Spontaneous
  Country: US (occurrence: US)
  Receive Date: 20160922
  Receipt Date: 20160922
  Transmission Date: 20161109
  Serious: Yes (Hospitalization)
  Sender: FDA-Public Use
  Company Number: US-TEVA-694873USA

PATIENT
  Age: 68 Year
  Sex: Male
  Weight: 135.16 kg

DRUGS (12)
  1. FUROSEMIDE. [Suspect]
     Active Substance: FUROSEMIDE
     Indication: SWELLING
     Dosage: 20MG, EVERY DAY, PRN
     Route: 048
     Dates: start: 20130716
  2. MORPHINE EXTENDED RELEASE [Suspect]
     Active Substance: MORPHINE
     Indication: PAIN
     Dosage: 30 MILLIGRAM DAILY;
     Route: 048
     Dates: start: 20130716
  3. IBUPROFEN. [Concomitant]
     Active Substance: IBUPROFEN
     Indication: OSTEOARTHRITIS
     Route: 048
     Dates: start: 20130507, end: 20130716
  4. INSULIN GLARGINE [Concomitant]
     Active Substance: INSULIN GLARGINE
     Indication: TYPE 2 DIABETES MELLITUS
     Dosage: 3900 MILLIGRAM DAILY;
     Route: 058
     Dates: start: 20130717
  5. OXYBUTYNIN [Concomitant]
     Active Substance: OXYBUTYNIN
     Indication: PAIN
     Dosage: 15 MILLIGRAM DAILY;
     Route: 048
     Dates: start: 20130716
  6. FUROSEMIDE. [Suspect]
     Active Substance: FUROSEMIDE
     Indication: HYPERTENSION
  7. OXYCODONE HYDROCHLORIDE. [Suspect]
     Active Substance: OXYCODONE HYDROCHLORIDE
     Indication: PAIN
     Dosage: 80 MILLIGRAM DAILY;
     Route: 048
     Dates: start: 20130507
  8. IBUPROFEN. [Concomitant]
     Active Substance: IBUPROFEN
     Indication: RHEUMATOID ARTHRITIS
  9. OMEPRAZOLE. [Concomitant]
     Active Substance: OMEPRAZOLE
     Indication: GASTROOESOPHAGEAL REFLUX DISEASE
     Dosage: 20 MILLIGRAM DAILY;
     Route: 048
     Dates: start: 20130716
  10. SIMVASTATIN. [Concomitant]
     Active Substance: SIMVASTATIN
     Indication: DYSLIPIDAEMIA
     Dosage: 40 MILLIGRAM DAILY;
     Route: 048
     Dates: start: 2009
  11. ASPIRIN. [Concomitant]
     Active Substance: ASPIRIN
     Indication: CARDIOVASCULAR EVENT PROPHYLAXIS
     Dosage: 81 MILLIGRAM DAILY;
     Route: 048
     Dates: start: 2006
  12. TOPIRAMATE. [Concomitant]
     Active Substance: TOPIRAMATE
     Indication: PRODUCT USED FOR UNKNOWN INDICATION
     Dosage: 50 MILLIGRAM DAILY;
     Route: 048
     Dates: start: 20130716

REACTIONS (2)
  - Chest pain [Recovered/Resolved]
  - Hypotension [Recovered/Resolved]

NARRATIVE: CASE EVENT DATE: 20160811
